FAERS Safety Report 16830219 (Version 1)
Quarter: 2019Q3

REPORT INFORMATION
  Report Type: Spontaneous
  Country: US (occurrence: US)
  Receive Date: 20190919
  Receipt Date: 20190919
  Transmission Date: 20191005
  Serious: Yes (Hospitalization)
  Sender: FDA-Public Use
  Company Number: US-ALEXION PHARMACEUTICALS INC.-A201913994

PATIENT
  Age: 26 Year
  Sex: Female

DRUGS (2)
  1. SOLIRIS [Suspect]
     Active Substance: ECULIZUMAB
     Indication: ATYPICAL HAEMOLYTIC URAEMIC SYNDROME
     Dosage: 900 MG, QW X 4 WEEKS
     Route: 065
     Dates: start: 2019
  2. SOLIRIS [Suspect]
     Active Substance: ECULIZUMAB
     Dosage: 1200 MG, Q2W
     Route: 042
     Dates: start: 2019

REACTIONS (15)
  - Hypertonic bladder [Unknown]
  - Asthenia [Not Recovered/Not Resolved]
  - Incorrect drug administration rate [Unknown]
  - Headache [Unknown]
  - Back pain [Unknown]
  - Fatigue [Not Recovered/Not Resolved]
  - Malaise [Unknown]
  - Symptom recurrence [Unknown]
  - Abdominal pain upper [Unknown]
  - Infusion related reaction [Unknown]
  - Therapeutic response shortened [Not Recovered/Not Resolved]
  - Pain [Unknown]
  - Spinal pain [Unknown]
  - Arthralgia [Unknown]
  - Neck pain [Not Recovered/Not Resolved]

NARRATIVE: CASE EVENT DATE: 2019
